FAERS Safety Report 5674728-X (Version None)
Quarter: 2008Q1

REPORT INFORMATION
  Report Type: 
  Country: None (occurrence: None)
  Receive Date: 20080320
  Receipt Date: 20080314
  Transmission Date: 20080703
  Serious: Yes (Death)
  Sender: FDA-Public Use
  Company Number: DE-ROCHE-553417

PATIENT
  Age: 50 Year
  Sex: Male
  Weight: 90 kg

DRUGS (8)
  1. CAPECITABINE [Suspect]
     Dosage: 2 WEEK TREATMENT ASND 1 WEEK REST
     Route: 048
     Dates: start: 20071001
  2. ERLOTINIB [Suspect]
     Indication: PANCREATIC CARCINOMA
     Route: 048
     Dates: start: 20071001
  3. PANCREASE [Concomitant]
  4. KALINOR BRAUSE [Concomitant]
  5. TRAMAL [Concomitant]
  6. OPII [Concomitant]
  7. SALVIATHYMOL [Concomitant]
  8. UNSPECIFIED DRUG [Concomitant]

REACTIONS (1)
  - DEATH [None]
